FAERS Safety Report 9027717 (Version 4)
Quarter: 2013Q2

REPORT INFORMATION
  Report Type: Spontaneous
  Country: US (occurrence: US)
  Receive Date: 20130124
  Receipt Date: 20130417
  Transmission Date: 20140414
  Serious: No
  Sender: FDA-Public Use
  Company Number: US-009507513-1301USA005005

PATIENT
  Age: 54 Year
  Sex: Male
  Weight: 78.91 kg

DRUGS (5)
  1. VICTRELIS [Suspect]
     Indication: CHRONIC HEPATITIS C
     Dosage: 800 MG, TID
     Route: 048
     Dates: start: 20121219
  2. VICTRELIS [Suspect]
     Dosage: 800 MG, TID
     Route: 048
     Dates: start: 20130111
  3. PEGINTRON [Suspect]
     Indication: CHRONIC HEPATITIS C
     Dosage: 150 MG, QW
     Route: 058
     Dates: start: 20121204
  4. PEGINTRON [Suspect]
     Dosage: 150 MICROGRAM PER 0.5 ML , WEEKLY
     Route: 058
     Dates: start: 20121207
  5. RIBAPAK [Suspect]
     Indication: CHRONIC HEPATITIS C
     Dosage: 600 MG, BID
     Dates: start: 20121207

REACTIONS (10)
  - Constipation [Not Recovered/Not Resolved]
  - Haemorrhoids [Unknown]
  - Conjunctivitis [Unknown]
  - White blood cell count decreased [Not Recovered/Not Resolved]
  - Oral pustule [Unknown]
  - Leukoplakia oral [Unknown]
  - Glossodynia [Unknown]
  - Glossitis [Unknown]
  - Blepharitis [Not Recovered/Not Resolved]
  - Nausea [Not Recovered/Not Resolved]
